FAERS Safety Report 4343510-8 (Version None)
Quarter: 2004Q2

REPORT INFORMATION
  Report Type: 
  Country: None (occurrence: None)
  Receive Date: 20040419
  Receipt Date: 20040402
  Transmission Date: 20050107
  Serious: Yes (Other)
  Sender: FDA-Public Use
  Company Number: 200313131BCC

PATIENT
  Age: 55 Year
  Sex: Male
  Weight: 195 kg

DRUGS (3)
  1. ALEVE (CAPLET) [Suspect]
     Indication: ARTHRALGIA
     Dosage: 220-440 MG, BID, ORAL
     Route: 048
     Dates: start: 20030813, end: 20030903
  2. ENALAPRIL MALEATE [Concomitant]
  3. ZANTAC [Concomitant]

REACTIONS (1)
  - BLOOD PRESSURE INCREASED [None]
